FAERS Safety Report 12662868 (Version 1)
Quarter: 2016Q3

REPORT INFORMATION
  Report Type: Report from Study
  Country: IT (occurrence: IT)
  Receive Date: 20160818
  Receipt Date: 20160818
  Transmission Date: 20161109
  Serious: Yes (Other)
  Sender: FDA-Public Use
  Company Number: IT-CIPLA LTD.-2016IT17069

PATIENT

DRUGS (6)
  1. BEVACIZUMAB [Suspect]
     Active Substance: BEVACIZUMAB
     Indication: COLORECTAL CANCER METASTATIC
     Dosage: 5 MG/KG, ON DAY 1, EVERY 2 WEEKS
     Route: 065
  2. IRINOTECAN [Suspect]
     Active Substance: IRINOTECAN
     Indication: COLORECTAL CANCER METASTATIC
     Dosage: 180 MG/M2, OVER 90 MINUTES, ON DAY 1, EVERY 2 WEEKS
     Route: 042
  3. FLUOROURACIL. [Suspect]
     Active Substance: FLUOROURACIL
     Indication: COLORECTAL CANCER METASTATIC
     Dosage: 400 MG/M2, BOLUS, ON DAYS 1 AND 2, EVERY 2 WEEKS
     Route: 040
  4. FOLINIC ACID [Suspect]
     Active Substance: LEUCOVORIN
     Indication: COLORECTAL CANCER METASTATIC
     Dosage: 100 MG/M2, ON DAYS 1 TO 2, OVER 120 MINUTES, EVERY 2 WEEKS
     Route: 042
  5. FLUOROURACIL. [Suspect]
     Active Substance: FLUOROURACIL
     Dosage: 1200 MG/M2, QD, INFUSION OVER 46 HOURS, EVERY 2 WEEKS
     Route: 042
  6. IRINOTECAN [Suspect]
     Active Substance: IRINOTECAN
     Dosage: UNK
     Route: 042

REACTIONS (1)
  - Adverse event [Unknown]
